FAERS Safety Report 11824315 (Version 1)
Quarter: 2015Q4

REPORT INFORMATION
  Report Type: Spontaneous
  Country: CA (occurrence: CA)
  Receive Date: 20151210
  Receipt Date: 20151210
  Transmission Date: 20160305
  Serious: Yes (Other)
  Sender: FDA-Public Use
  Company Number: CA-BAYER-2015-480967

PATIENT
  Age: 35 Year
  Sex: Female

DRUGS (5)
  1. BETAMETHASONE. [Concomitant]
     Active Substance: BETAMETHASONE
  2. MGSO4 [Concomitant]
     Active Substance: MAGNESIUM SULFATE
  3. PHENYLEPHRINE [Concomitant]
     Active Substance: PHENYLEPHRINE\PHENYLEPHRINE HYDROCHLORIDE
  4. NITROGLYCERINE [Concomitant]
     Active Substance: NITROGLYCERIN
  5. NIFEDIPINE. [Suspect]
     Active Substance: NIFEDIPINE
     Dosage: 30 MG, BID

REACTIONS (4)
  - Bradycardia foetal [None]
  - Maternal exposure during pregnancy [None]
  - Premature delivery [None]
  - Off label use [None]
